FAERS Safety Report 9358884 (Version 2)
Quarter: 2013Q3

REPORT INFORMATION
  Report Type: Report from Study
  Country: US (occurrence: US)
  Receive Date: 20130620
  Receipt Date: 20130806
  Transmission Date: 20140515
  Serious: Yes (Hospitalization)
  Sender: FDA-Public Use
  Company Number: US-ACTELION-A-US2012-74843

PATIENT
  Age: 28 Year
  Sex: Female

DRUGS (4)
  1. TRACLEER [Suspect]
     Indication: PULMONARY ARTERIAL HYPERTENSION
     Dosage: UNK
     Route: 048
  2. REMODULIN [Concomitant]
  3. PRADAXA [Concomitant]
  4. ADCIRCA [Concomitant]

REACTIONS (3)
  - Urinary tract infection [Recovering/Resolving]
  - Device related sepsis [Recovering/Resolving]
  - Catheter placement [Recovering/Resolving]
